FAERS Safety Report 5833553-7 (Version None)
Quarter: 2008Q3

REPORT INFORMATION
  Report Type: 
  Country: None (occurrence: None)
  Receive Date: 20080805
  Receipt Date: 20080722
  Transmission Date: 20090109
  Serious: Yes (Other)
  Sender: FDA-Public Use
  Company Number: GB-SOLVAY-00308003229

PATIENT
  Age: 69 Year
  Sex: Male
  Weight: 72 kg

DRUGS (6)
  1. OMEPRAZOLE [Concomitant]
     Indication: DYSPEPSIA
     Dosage: DAILY DOSE: 20 MILLIGRAM(S)
     Route: 048
     Dates: start: 20080103, end: 20080101
  2. OMEPRAZOLE [Concomitant]
     Dosage: DAILY DOSE: 20 MILLIGRAM(S)
     Route: 048
     Dates: start: 20080513, end: 20080601
  3. CREON [Suspect]
     Indication: PANCREATITIS
     Dosage: DAILY DOSE: 1 CAPSULE BEFORE EACH MEAL, AS USED DOSAGE: 10000, FREQUENCY: AS NEEDED.
     Route: 048
     Dates: start: 20071130, end: 20071201
  4. CREON [Suspect]
     Dosage: DAILY DOSE: 1 CAPSULE BEFORE EACH MEAL, AS USED DOSAGE: 10000, FREQUENCY: AS NEEDED.
     Route: 048
     Dates: start: 20080301, end: 20080301
  5. PANCREX [Suspect]
     Indication: PANCREATITIS
     Dosage: DAILY DOSE:  UNKNOWN
     Route: 065
     Dates: end: 20080301
  6. PANCREX [Suspect]
     Dosage: DAILY DOSE: 900 GRAM(S)
     Route: 048
     Dates: start: 20080513, end: 20080101

REACTIONS (3)
  - ABDOMINAL PAIN [None]
  - DIARRHOEA [None]
  - WEIGHT DECREASED [None]
